FAERS Safety Report 18617114 (Version 2)
Quarter: 2021Q1

REPORT INFORMATION
  Report Type: Not Available
  Country: US (occurrence: US)
  Receive Date: 20201215
  Receipt Date: 20210113
  Transmission Date: 20210419
  Serious: No
  Sender: FDA-Public Use
  Company Number: US-NEUROCRINE BIOSCIENCES INC.-2020NBI04444

PATIENT
  Age: 47 Year
  Sex: Male

DRUGS (7)
  1. REXULTI [Concomitant]
     Active Substance: BREXPIPRAZOLE
     Indication: PSYCHOTIC DISORDER
  2. REXULTI [Concomitant]
     Active Substance: BREXPIPRAZOLE
     Indication: DEPRESSION
  3. REXULTI [Concomitant]
     Active Substance: BREXPIPRAZOLE
     Indication: BIPOLAR DISORDER
     Route: 048
     Dates: start: 202008
  4. LAMICTAL [Concomitant]
     Active Substance: LAMOTRIGINE
     Indication: BIPOLAR DISORDER
     Dosage: 500 (UNIT NOT REPORTED) STARTED PRE?2020
     Route: 048
  5. PROPRANOLOL [Concomitant]
     Active Substance: PROPRANOLOL HYDROCHLORIDE
     Indication: TREMOR
     Dosage: 60 (UNIT NOT REPORTED)
     Route: 048
     Dates: start: 202006
  6. SAXENDA [Concomitant]
     Active Substance: LIRAGLUTIDE
     Indication: BLOOD GLUCOSE FLUCTUATION
     Route: 030
  7. INGREZZA [Suspect]
     Active Substance: VALBENAZINE
     Indication: TARDIVE DYSKINESIA
     Route: 048
     Dates: start: 20201026, end: 202011

REACTIONS (1)
  - Depression suicidal [Recovered/Resolved]

NARRATIVE: CASE EVENT DATE: 202011
